FAERS Safety Report 13117094 (Version 2)
Quarter: 2017Q1

REPORT INFORMATION
  Report Type: Spontaneous
  Country: US (occurrence: US)
  Receive Date: 20170116
  Receipt Date: 20170314
  Transmission Date: 20170428
  Serious: Yes (Other)
  Sender: FDA-Public Use
  Company Number: PHEH2017US001252

PATIENT
  Age: 81 Year
  Sex: Male
  Weight: 80 kg

DRUGS (3)
  1. VANCOMYCIN [Suspect]
     Active Substance: VANCOMYCIN
     Indication: OSTEOMYELITIS
     Dosage: 1.5 G, QD
     Route: 042
     Dates: start: 20161223, end: 20170125
  2. TORSEMIDE. [Concomitant]
     Active Substance: TORSEMIDE
     Indication: CARDIAC FAILURE CONGESTIVE
     Dosage: 40 MG, QD
     Route: 048
  3. ENTRESTO [Suspect]
     Active Substance: SACUBITRIL\VALSARTAN
     Indication: CARDIAC FAILURE
     Dosage: 50 MG, BID
     Route: 048
     Dates: start: 20161229, end: 20170106

REACTIONS (1)
  - Renal injury [Recovering/Resolving]

NARRATIVE: CASE EVENT DATE: 20170104
